FAERS Safety Report 10207925 (Version 1)
Quarter: 2014Q2

REPORT INFORMATION
  Report Type: Spontaneous
  Country: DE (occurrence: DE)
  Receive Date: 20140530
  Receipt Date: 20140530
  Transmission Date: 20141212
  Serious: Yes (Other)
  Sender: FDA-Public Use
  Company Number: DE-TEVA-484674GER

PATIENT
  Age: 1 Day
  Sex: Male

DRUGS (3)
  1. SERTRALINE [Suspect]
     Route: 064
  2. SEROQUEL PROLONG [Suspect]
     Route: 064
  3. FEMIBION SCHWANGERSCHAFT 1 [Concomitant]
     Route: 064

REACTIONS (2)
  - Vena cava thrombosis [Not Recovered/Not Resolved]
  - Renal vein thrombosis [Not Recovered/Not Resolved]
